FAERS Safety Report 15306205 (Version 2)
Quarter: 2018Q3

REPORT INFORMATION
  Report Type: Spontaneous
  Country: US (occurrence: US)
  Receive Date: 20180822
  Receipt Date: 20180828
  Transmission Date: 20181010
  Serious: No
  Sender: FDA-Public Use
  Company Number: US-PFIZER INC-2018217107

PATIENT
  Age: 38 Year
  Sex: Female
  Weight: 94 kg

DRUGS (3)
  1. AMLODIPINE BESILATE [Concomitant]
     Active Substance: AMLODIPINE BESYLATE
     Dosage: 10 MG, 1X/DAY
     Route: 048
  2. LYRICA [Suspect]
     Active Substance: PREGABALIN
     Indication: FIBROMYALGIA
     Dosage: 150 MG, UNK
     Route: 048
     Dates: start: 20180516, end: 2018
  3. LYRICA [Suspect]
     Active Substance: PREGABALIN
     Dosage: 225 MG, 2X/DAY
     Route: 048
     Dates: start: 20180601, end: 20180601

REACTIONS (5)
  - Drug ineffective [Unknown]
  - Depression [Unknown]
  - Drug dispensing error [Unknown]
  - Fatigue [Unknown]
  - Emotional disorder [Unknown]

NARRATIVE: CASE EVENT DATE: 2018
